FAERS Safety Report 6656837-1 (Version None)
Quarter: 2010Q1

REPORT INFORMATION
  Report Type: 
  Country: None (occurrence: None)
  Receive Date: 20100325
  Receipt Date: 20100316
  Transmission Date: 20100710
  Serious: Yes (Hospitalization, Other)
  Sender: FDA-Public Use
  Company Number: 2009AC000493

PATIENT
  Age: 58 Year
  Sex: Male

DRUGS (20)
  1. DIGOXIN [Suspect]
     Dosage: 0.25 MG; QD; PO
     Route: 048
     Dates: start: 19991001
  2. FLOMAX [Concomitant]
  3. DOXYCYCLINE [Concomitant]
  4. IBUPROFEN [Concomitant]
  5. ACIPHEX [Concomitant]
  6. LEVAQUIN [Concomitant]
  7. ACEBUTOLOL [Concomitant]
  8. OXYCODONE [Concomitant]
  9. SERTRALINE HCL [Concomitant]
  10. SECTRAL [Concomitant]
  11. ASPIRIN [Concomitant]
  12. LEVITRA [Concomitant]
  13. PERCOCET [Concomitant]
  14. MOTRIN [Concomitant]
  15. NORVASC [Concomitant]
  16. TRAMADOL HCL [Concomitant]
  17. ALPRAZOLAM [Concomitant]
  18. TRIMOX [Concomitant]
  19. CELEXA [Concomitant]
  20. PRILOSEC [Concomitant]

REACTIONS (12)
  - ARRHYTHMIA [None]
  - COUGH [None]
  - DRUG LEVEL BELOW THERAPEUTIC [None]
  - EPIDIDYMITIS [None]
  - EPISTAXIS [None]
  - GROIN PAIN [None]
  - HEART RATE INCREASED [None]
  - MULTIPLE INJURIES [None]
  - PALPITATIONS [None]
  - SINUS CONGESTION [None]
  - SINUSITIS [None]
  - UNEVALUABLE EVENT [None]
